FAERS Safety Report 9508292 (Version 1)
Quarter: 2013Q3

REPORT INFORMATION
  Report Type: Spontaneous
  Country: US (occurrence: US)
  Receive Date: 20130909
  Receipt Date: 20130909
  Transmission Date: 20140515
  Serious: No
  Sender: FDA-Public Use
  Company Number: US-PFIZER INC-2013258603

PATIENT
  Age: 43 Year
  Sex: Female
  Weight: 79.4 kg

DRUGS (2)
  1. PRISTIQ [Suspect]
     Indication: DEPRESSION
     Dosage: 50MG DAILY
     Dates: start: 2012, end: 2013
  2. ABILIFY [Suspect]
     Indication: DEPRESSION
     Dosage: 2.5MG DAILY

REACTIONS (3)
  - Insomnia [Unknown]
  - Headache [Unknown]
  - Depression [Unknown]
